FAERS Safety Report 23892965 (Version 1)
Quarter: 2024Q2

REPORT INFORMATION
  Report Type: Report from Study
  Country: BE (occurrence: BE)
  Receive Date: 20240524
  Receipt Date: 20240524
  Transmission Date: 20240715
  Serious: Yes (Death, Hospitalization, Other)
  Sender: FDA-Public Use
  Company Number: BE-JNJFOC-20240559309

PATIENT

DRUGS (8)
  1. STELARA [Suspect]
     Active Substance: USTEKINUMAB
     Indication: Crohn^s disease
     Route: 058
  2. STELARA [Suspect]
     Active Substance: USTEKINUMAB
     Indication: Colitis ulcerative
  3. STELARA [Suspect]
     Active Substance: USTEKINUMAB
     Indication: Inflammatory bowel disease
  4. STELARA [Suspect]
     Active Substance: USTEKINUMAB
     Indication: Intestinal anastomosis
  5. VEDOLIZUMAB [Suspect]
     Active Substance: VEDOLIZUMAB
     Indication: Inflammatory bowel disease
     Route: 065
  6. VEDOLIZUMAB [Suspect]
     Active Substance: VEDOLIZUMAB
     Indication: Crohn^s disease
  7. VEDOLIZUMAB [Suspect]
     Active Substance: VEDOLIZUMAB
     Indication: Colitis ulcerative
  8. VEDOLIZUMAB [Suspect]
     Active Substance: VEDOLIZUMAB
     Indication: Intestinal anastomosis

REACTIONS (10)
  - Death [Fatal]
  - Colorectal cancer [Unknown]
  - Liver transplant rejection [Unknown]
  - Haematological malignancy [Unknown]
  - Neoplasm [Unknown]
  - Surgery [Unknown]
  - Hospitalisation [Unknown]
  - Cholangitis sclerosing [Unknown]
  - Post procedural infection [Unknown]
  - Cytomegalovirus infection [Unknown]
